FAERS Safety Report 9396658 (Version 1)
Quarter: 2013Q3

REPORT INFORMATION
  Report Type: Spontaneous
  Country: US (occurrence: US)
  Receive Date: 20130711
  Receipt Date: 20130711
  Transmission Date: 20140515
  Serious: No
  Sender: FDA-Public Use
  Company Number: US-009507513-1305USA010306

PATIENT
  Sex: Female

DRUGS (2)
  1. AZASITE [Suspect]
     Indication: CONJUNCTIVITIS
     Dosage: 2 GTT, BID FOR 2 DAYS
     Route: 047
     Dates: start: 20130509, end: 20130510
  2. AZASITE [Suspect]
     Dosage: 2 GTT, QD FOR 10 DAYS
     Route: 047
     Dates: start: 20130511, end: 20130520

REACTIONS (3)
  - Incorrect drug administration duration [Unknown]
  - No adverse event [Unknown]
  - Drug hypersensitivity [Unknown]
